FAERS Safety Report 9219434 (Version 2)
Quarter: 2013Q2

REPORT INFORMATION
  Report Type: Spontaneous
  Country: US (occurrence: US)
  Receive Date: 20130409
  Receipt Date: 20130513
  Transmission Date: 20140414
  Serious: Yes (Death)
  Sender: FDA-Public Use
  Company Number: US-PFIZER INC-2013107465

PATIENT
  Age: 80 Year
  Sex: Female
  Weight: 53.97 kg

DRUGS (3)
  1. VFEND [Suspect]
     Indication: INFECTION
     Dosage: UNK
     Route: 048
     Dates: start: 20130401
  2. VFEND [Suspect]
     Dosage: UNK
     Dates: start: 201304
  3. CELEXA [Suspect]
     Dosage: UNK

REACTIONS (3)
  - Cardiac disorder [Fatal]
  - Lung disorder [Fatal]
  - Nervousness [Unknown]
